FAERS Safety Report 13717908 (Version 1)
Quarter: 2017Q3

REPORT INFORMATION
  Report Type: Spontaneous
  Country: US (occurrence: US)
  Receive Date: 20170705
  Receipt Date: 20170705
  Transmission Date: 20171127
  Serious: No
  Sender: FDA-Public Use
  Company Number: US-JUBILANT CADISTA PHARMACEUTICALS-2016JUB00297

PATIENT
  Age: 91 Year
  Sex: Male

DRUGS (8)
  1. ASPIRIN. [Concomitant]
     Active Substance: ASPIRIN
  2. DONEPEZIL HYDROCHLORIDE. [Suspect]
     Active Substance: DONEPEZIL HYDROCHLORIDE
     Indication: DEMENTIA ALZHEIMER^S TYPE
     Dosage: UNK
     Dates: start: 2011
  3. UNSPECIFIED NEUROTRANSMITTER [Concomitant]
  4. D2 [Concomitant]
  5. UNSPECIFIED VITAMINS [Concomitant]
     Active Substance: VITAMINS
  6. LEVOTHYROXINE. [Concomitant]
     Active Substance: LEVOTHYROXINE
  7. UNSPECIFIED BLADDER DRUGS [Concomitant]
  8. VITAMIN D3 [Concomitant]
     Active Substance: CHOLECALCIFEROL

REACTIONS (1)
  - Eructation [Not Recovered/Not Resolved]

NARRATIVE: CASE EVENT DATE: 2015
